FAERS Safety Report 16709447 (Version 1)
Quarter: 2019Q3

REPORT INFORMATION
  Report Type: Report from Study
  Country: US (occurrence: US)
  Receive Date: 20190816
  Receipt Date: 20190816
  Transmission Date: 20191004
  Serious: Yes (Other)
  Sender: FDA-Public Use
  Company Number: US-ROCHE-2376877

PATIENT

DRUGS (2)
  1. OXALIPLATIN. [Suspect]
     Active Substance: OXALIPLATIN
     Indication: ANAL SQUAMOUS CELL CARCINOMA
     Dosage: DAYS 1, 8, 22, AND 29 DURING RADIATION THERAPY ONLY
     Route: 042
  2. CAPECITABINE. [Suspect]
     Active Substance: CAPECITABINE
     Indication: ANAL SQUAMOUS CELL CARCINOMA
     Dosage: GIVEN MONDAY TO FRIDAYS ONLY, ON DAYS OF RADIATION THERAPY ONLY. WEEKS 1-2 AND 4-5 ONLY
     Route: 048

REACTIONS (8)
  - Diarrhoea [Unknown]
  - Nausea [Unknown]
  - Abdominal pain [Unknown]
  - Fatigue [Unknown]
  - Dehydration [Unknown]
  - Haemoglobin abnormal [Unknown]
  - Pain [Unknown]
  - Perineal pain [Unknown]
